FAERS Safety Report 9734239 (Version 2)
Quarter: 2014Q2

REPORT INFORMATION
  Report Type: Spontaneous
  Country: US (occurrence: US)
  Receive Date: 20131205
  Receipt Date: 20140519
  Transmission Date: 20141212
  Serious: Yes (Other)
  Sender: FDA-Public Use
  Company Number: US-GILEAD-2013-0089189

PATIENT
  Sex: Female

DRUGS (7)
  1. LETAIRIS [Suspect]
     Indication: PULMONARY HYPERTENSION
     Dosage: 5 MG, QD
     Route: 065
     Dates: start: 201307
  2. LETAIRIS [Suspect]
     Indication: CATHETERISATION CARDIAC
     Dosage: 10 MG, QD
     Route: 048
     Dates: start: 201310
  3. NORTRIPTYLINE [Concomitant]
  4. FUROSEMIDE [Concomitant]
  5. EZETIMIBE [Concomitant]
  6. ATORVASTATIN [Concomitant]
  7. WARFARIN [Concomitant]

REACTIONS (1)
  - Pregnancy test false positive [Recovered/Resolved]
